FAERS Safety Report 8886359 (Version 1)
Quarter: 2012Q4

REPORT INFORMATION
  Report Type: 
  Country: US (occurrence: US)
  Receive Date: 20121105
  Receipt Date: 20121105
  Transmission Date: 20130627
  Serious: Yes (Other)
  Sender: FDA-Public Use
  Company Number: US-ROCHE-792001

PATIENT
  Age: 14 Year
  Sex: Male
  Weight: 58.11 kg

DRUGS (6)
  1. ACCUTANE [Suspect]
     Indication: ACNE
     Route: 048
     Dates: start: 20050307, end: 20050822
  2. ACCUTANE [Suspect]
     Route: 048
  3. ACCUTANE [Suspect]
     Route: 048
  4. AMNESTEEM [Suspect]
     Indication: ACNE
     Dosage: 20 mg and 40 mg cap.
     Route: 048
     Dates: start: 20040325, end: 200409
  5. CLARAVIS [Suspect]
     Indication: ACNE
     Route: 065
     Dates: start: 200403, end: 200408
  6. SOTRET [Suspect]
     Indication: ACNE
     Route: 065
     Dates: start: 200403, end: 200408

REACTIONS (6)
  - Crohn^s disease [Unknown]
  - Inflammatory bowel disease [Unknown]
  - Emotional distress [Unknown]
  - Anal fissure [Unknown]
  - Dry skin [Recovered/Resolved]
  - Lip dry [Unknown]
